FAERS Safety Report 19717423 (Version 1)
Quarter: 2021Q3

REPORT INFORMATION
  Report Type: Spontaneous
  Country: IN (occurrence: IN)
  Receive Date: 20210819
  Receipt Date: 20210819
  Transmission Date: 20211014
  Serious: Yes (Other)
  Sender: FDA-Public Use
  Company Number: IN-CADILA HEALTHCARE LIMITED-IN-ZYDUS-069010

PATIENT

DRUGS (1)
  1. DICLOFENAC [Suspect]
     Active Substance: DICLOFENAC
     Indication: PAIN
     Dosage: UNK
     Route: 061
     Dates: start: 202106

REACTIONS (2)
  - Herpes zoster [Recovered/Resolved with Sequelae]
  - Post herpetic neuralgia [Recovered/Resolved with Sequelae]

NARRATIVE: CASE EVENT DATE: 202107
